FAERS Safety Report 9783881 (Version 2)
Quarter: 2014Q1

REPORT INFORMATION
  Report Type: Spontaneous
  Country: US (occurrence: US)
  Receive Date: 20131226
  Receipt Date: 20140211
  Transmission Date: 20141002
  Serious: Yes (Other)
  Sender: FDA-Public Use
  Company Number: US-PFIZER INC-2013365206

PATIENT
  Age: 73 Year
  Sex: Female
  Weight: 147.39 kg

DRUGS (4)
  1. LYRICA [Suspect]
     Indication: SPINAL COLUMN STENOSIS
     Dosage: 150 MG, 2X/DAY
     Dates: start: 201311
  2. LYRICA [Suspect]
     Indication: BACK PAIN
     Dosage: 75 MG, 2X/DAY
     Dates: start: 20131219
  3. LYRICA [Suspect]
     Dosage: UNK
     Dates: end: 20131220
  4. PRAVASTATIN [Concomitant]
     Indication: BLOOD CHOLESTEROL ABNORMAL
     Dosage: 10 MG, 1X/DAY

REACTIONS (7)
  - Off label use [Unknown]
  - Weight increased [Unknown]
  - Lip swelling [Recovered/Resolved]
  - Swelling face [Recovered/Resolved]
  - Fluid retention [Unknown]
  - Local swelling [Recovered/Resolved]
  - Gait disturbance [Recovered/Resolved]
